FAERS Safety Report 12304901 (Version 2)
Quarter: 2016Q2

REPORT INFORMATION
  Report Type: Spontaneous
  Country: US (occurrence: US)
  Receive Date: 20160426
  Receipt Date: 20160606
  Transmission Date: 20160815
  Serious: No
  Sender: FDA-Public Use
  Company Number: US-PFIZER INC-2016226233

PATIENT
  Age: 88 Year
  Sex: Male
  Weight: 63.5 kg

DRUGS (1)
  1. ADVIL PM [Suspect]
     Active Substance: DIPHENHYDRAMINE CITRATE\IBUPROFEN
     Indication: SLEEP DISORDER
     Dosage: 1 DF, DAILY (AT NIGHT)
     Route: 048
     Dates: end: 201604

REACTIONS (4)
  - Choking sensation [Recovered/Resolved]
  - Dysphagia [Recovered/Resolved]
  - Product size issue [Recovered/Resolved]
  - Product difficult to swallow [Recovered/Resolved]
